FAERS Safety Report 8586926-6 (Version None)
Quarter: 2012Q3

REPORT INFORMATION
  Report Type: 
  Country: None (occurrence: None)
  Receive Date: 20120810
  Receipt Date: 20120802
  Transmission Date: 20120928
  Serious: Yes (Life-Threatening)
  Sender: FDA-Public Use
  Company Number: CHPA2012FR017617

PATIENT

DRUGS (3)
  1. CELESTONE [Concomitant]
     Dosage: UNK, UNK
     Route: 064
  2. NICARDIPINE HCL [Concomitant]
     Dosage: UNK, UNK
     Route: 064
  3. NICOTINE [Suspect]
     Dosage: MATERNAL DOSE: 14 MG ONCE
     Route: 064
     Dates: start: 20120627, end: 20120627

REACTIONS (2)
  - FOETAL HEART RATE DISORDER [None]
  - FOETAL NON-STRESS TEST ABNORMAL [None]
